FAERS Safety Report 13026362 (Version 1)
Quarter: 2016Q4

REPORT INFORMATION
  Report Type: Spontaneous
  Country: CO (occurrence: CO)
  Receive Date: 20161214
  Receipt Date: 20161214
  Transmission Date: 20170207
  Serious: Yes (Other)
  Sender: FDA-Public Use
  Company Number: CO-VIIV HEALTHCARE LIMITED-CO2016GSK184623

PATIENT
  Age: 37 Year
  Sex: Female

DRUGS (5)
  1. ABACAVIR SULFATE + LAMIVUDINE [Suspect]
     Active Substance: ABACAVIR SULFATE\LAMIVUDINE
     Indication: HIV INFECTION
  2. DAPSONE. [Concomitant]
     Active Substance: DAPSONE
     Indication: LEPROSY
  3. CLOFAZIMINE [Concomitant]
     Active Substance: CLOFAZIMINE
     Indication: LEPROSY
  4. RIFAMPICIN [Concomitant]
     Active Substance: RIFAMPIN
     Indication: LEPROSY
  5. LOPINAVIR + RITONAVIR [Suspect]
     Active Substance: LOPINAVIR\RITONAVIR
     Indication: HIV INFECTION

REACTIONS (5)
  - Hypoaesthesia [Unknown]
  - Blister [Unknown]
  - Erythema [Unknown]
  - Immune reconstitution inflammatory syndrome [Unknown]
  - Skin necrosis [Unknown]
